FAERS Safety Report 21494115 (Version 1)
Quarter: 2022Q4

REPORT INFORMATION
  Report Type: Spontaneous
  Country: DE (occurrence: DE)
  Receive Date: 20221021
  Receipt Date: 20221021
  Transmission Date: 20230113
  Serious: Yes (Hospitalization)
  Sender: FDA-Public Use
  Company Number: DE-ADRED-04810-01

PATIENT
  Age: 68 Year
  Sex: Male

DRUGS (6)
  1. CARBOPLATIN [Suspect]
     Active Substance: CARBOPLATIN
     Indication: Product used for unknown indication
     Dosage: 450 MG, LAST DOSE  ON 17 JAN 2020
     Route: 065
     Dates: end: 20200117
  2. PACLITAXEL [Suspect]
     Active Substance: PACLITAXEL
     Indication: Product used for unknown indication
     Dosage: 180 MG, LAST DOSE ON 24 JAN 2020
     Route: 065
     Dates: end: 20200124
  3. ATEZOLIZUMAB [Suspect]
     Active Substance: ATEZOLIZUMAB
     Indication: Product used for unknown indication
     Dosage: 1200 MG, LAST DOSE ON 16 JAN 2020
     Route: 065
     Dates: end: 20200116
  4. AMLODIPINE [Concomitant]
     Active Substance: AMLODIPINE BESYLATE
     Indication: Product used for unknown indication
     Dosage: 10 MG, 1-0-0-0
     Route: 065
  5. ENOXAPARIN [Concomitant]
     Active Substance: ENOXAPARIN
     Indication: Product used for unknown indication
     Dosage: 0.6 MG, 1-0-1-0
     Route: 058
  6. LOSARTAN [Concomitant]
     Active Substance: LOSARTAN
     Indication: Product used for unknown indication
     Dosage: 100 MG, 1-0-0-0
     Route: 065

REACTIONS (4)
  - Pyrexia [Unknown]
  - Arthralgia [Unknown]
  - Febrile neutropenia [None]
  - Bone pain [None]

NARRATIVE: CASE EVENT DATE: 20200103
